FAERS Safety Report 7732315-3 (Version None)
Quarter: 2011Q3

REPORT INFORMATION
  Report Type: 
  Country: None (occurrence: None)
  Receive Date: 20110906
  Receipt Date: 20110826
  Transmission Date: 20111222
  Serious: No
  Sender: FDA-Public Use
  Company Number: US-AMGEN-USASP2011044130

PATIENT
  Sex: Female

DRUGS (1)
  1. PROLIA [Suspect]
     Indication: PRODUCT USED FOR UNKNOWN INDICATION
     Dosage: UNK
     Dates: start: 20110812

REACTIONS (15)
  - HEADACHE [None]
  - FEELING OF BODY TEMPERATURE CHANGE [None]
  - APHONIA [None]
  - PYREXIA [None]
  - CHEST DISCOMFORT [None]
  - CHILLS [None]
  - BACK PAIN [None]
  - FATIGUE [None]
  - SOMNOLENCE [None]
  - DYSPNOEA [None]
  - PAIN [None]
  - PALPITATIONS [None]
  - MALAISE [None]
  - INSOMNIA [None]
  - ASTHENIA [None]
